FAERS Safety Report 23435165 (Version 2)
Quarter: 2024Q2

REPORT INFORMATION
  Report Type: Spontaneous
  Country: US (occurrence: US)
  Receive Date: 20240123
  Receipt Date: 20240430
  Transmission Date: 20240716
  Serious: Yes (Hospitalization, Other)
  Sender: FDA-Public Use
  Company Number: US-BEH-2024167797

PATIENT
  Age: 67 Year
  Sex: Female

DRUGS (11)
  1. PRIVIGEN [Suspect]
     Active Substance: HUMAN IMMUNOGLOBULIN G
     Indication: Immunodeficiency common variable
     Dosage: 40 GRAM, QMT (EVERY 4 WEEKS)
     Route: 042
     Dates: start: 202210
  2. SODIUM CHLORIDE [Concomitant]
     Active Substance: SODIUM CHLORIDE
     Route: 065
  3. SODIUM CHLORIDE [Concomitant]
     Active Substance: SODIUM CHLORIDE
     Route: 065
  4. OXYGEN [Concomitant]
     Active Substance: OXYGEN
  5. PREDNISONE [Concomitant]
     Active Substance: PREDNISONE
     Dosage: 22 MG, QD
  6. SPIRIVA [Concomitant]
     Active Substance: TIOTROPIUM BROMIDE MONOHYDRATE
  7. ALBUTEROL [Concomitant]
     Active Substance: ALBUTEROL
  8. DUPIXENT [Concomitant]
     Active Substance: DUPILUMAB
  9. SYMBICORT [Concomitant]
     Active Substance: BUDESONIDE\FORMOTEROL FUMARATE DIHYDRATE
  10. CEFUROXIME [Concomitant]
     Active Substance: CEFUROXIME
  11. AZITHROMYCIN [Concomitant]
     Active Substance: AZITHROMYCIN

REACTIONS (6)
  - Pneumonia [Unknown]
  - Pneumonia [Unknown]
  - Organising pneumonia [Unknown]
  - Pulmonary sarcoidosis [Unknown]
  - Poor venous access [Unknown]
  - Product dose omission in error [Unknown]

NARRATIVE: CASE EVENT DATE: 20231101
